FAERS Safety Report 6016784-5 (Version None)
Quarter: 2008Q4

REPORT INFORMATION
  Report Type: 
  Country: None (occurrence: None)
  Receive Date: 20081222
  Receipt Date: 20081219
  Transmission Date: 20090506
  Serious: Yes (Hospitalization)
  Sender: FDA-Public Use
  Company Number: A0761331A

PATIENT
  Age: 49 Year
  Sex: Female
  Weight: 67 kg

DRUGS (2)
  1. VALTREX [Suspect]
     Indication: HERPES ZOSTER
     Dosage: 500MG UNKNOWN
     Dates: start: 20081128, end: 20081128
  2. HYDROCHLOROTHIAZIDE [Concomitant]
     Dates: start: 20060101

REACTIONS (3)
  - OEDEMA [None]
  - PRURITUS [None]
  - RASH VESICULAR [None]
